FAERS Safety Report 13362468 (Version 2)
Quarter: 2017Q1

REPORT INFORMATION
  Report Type: Spontaneous
  Country: US (occurrence: US)
  Receive Date: 20170323
  Receipt Date: 20170330
  Transmission Date: 20170429
  Serious: No
  Sender: FDA-Public Use
  Company Number: US-PFIZER INC-2016485399

PATIENT
  Age: 72 Year
  Sex: Female
  Weight: 86 kg

DRUGS (14)
  1. SUTENT [Suspect]
     Active Substance: SUNITINIB MALATE
     Indication: RENAL CANCER METASTATIC
     Dosage: 50 MG, CYCLIC (DAILY, 2 WEEKS ON/1 WEEK OFF)
     Dates: start: 20161110, end: 201702
  2. VITAMIN D3 [Concomitant]
     Active Substance: CHOLECALCIFEROL
     Dosage: 2000 IU, DAILY
     Route: 048
  3. POLYETHYLENE GLYCOL 3350. [Concomitant]
     Active Substance: POLYETHYLENE GLYCOL 3350
     Dosage: 17 G, DAILY (AS DIRECTED)
     Route: 048
  4. SUTENT [Suspect]
     Active Substance: SUNITINIB MALATE
     Dosage: UNK
  5. SENNA LAXATIVE [Concomitant]
     Active Substance: SENNOSIDES
     Dosage: 8.6 MG, DAILY
     Route: 048
  6. DEXAMETHASONE. [Concomitant]
     Active Substance: DEXAMETHASONE
     Dosage: 4 MG, UNK (AS DIRECTED)
     Route: 048
  7. CALCIUM + MAGNESIUM [Concomitant]
     Dosage: 4 DF, DAILY
     Route: 048
  8. FISH OIL 1-A-DAY + VITAMIN D3 [Concomitant]
     Dosage: 1 DF, DAILY
     Route: 048
  9. SUTENT [Suspect]
     Active Substance: SUNITINIB MALATE
     Dosage: 50 MG, CYCLIC (DAILY, 2 WEEKS ON/1 WEEK OFF)
     Dates: start: 20170220
  10. EMERGEN-C BONE HEALTH [Concomitant]
     Dosage: 1000 MG, UNK
     Route: 048
  11. LORAZEPAM. [Concomitant]
     Active Substance: LORAZEPAM
     Indication: NAUSEA
     Dosage: 0.5 MG, AS NEEDED (Q4H)
     Route: 048
  12. OXYCODONE HYDROCHLORIDE. [Concomitant]
     Active Substance: OXYCODONE HYDROCHLORIDE
     Dosage: 10 MG, UNK (AS DIRECTED)
     Route: 048
  13. PROPRANOLOL HCL [Concomitant]
     Active Substance: PROPRANOLOL HYDROCHLORIDE
     Dosage: 60 MG, DAILY
     Route: 048
  14. FENTANYL HYDROCHLORIDE [Concomitant]
     Active Substance: FENTANYL HYDROCHLORIDE
     Dosage: 40 UG, UNK
     Route: 061

REACTIONS (13)
  - White blood cell count decreased [Unknown]
  - Muscular weakness [Unknown]
  - Diarrhoea [Unknown]
  - Hypertension [Unknown]
  - Dyspepsia [Unknown]
  - Hypercalcaemia [Unknown]
  - Back pain [Unknown]
  - Decreased appetite [Unknown]
  - Weight decreased [Unknown]
  - Muscle spasms [Unknown]
  - Feeding disorder [Unknown]
  - Platelet count decreased [Unknown]
  - Disease recurrence [Unknown]

NARRATIVE: CASE EVENT DATE: 201612
